FAERS Safety Report 21614680 (Version 1)
Quarter: 2022Q4

REPORT INFORMATION
  Report Type: Spontaneous
  Country: US (occurrence: US)
  Receive Date: 20221118
  Receipt Date: 20221118
  Transmission Date: 20230113
  Serious: Yes (Hospitalization, Other)
  Sender: FDA-Public Use
  Company Number: US-009507513-2211USA003375

PATIENT
  Age: 25 Year
  Sex: Male
  Weight: 61 kg

DRUGS (16)
  1. TEMODAR [Suspect]
     Active Substance: TEMOZOLOMIDE
     Dosage: 100 MG/M2, DAILY ON DAYS 1-5, EVERY 21 DAYS
     Route: 048
     Dates: start: 20220613
  2. TEMODAR [Suspect]
     Active Substance: TEMOZOLOMIDE
     Dosage: 100 MG/M2, DAILY ON DAYS 1-5, EVERY 21 DAYS
     Route: 048
     Dates: start: 20220819
  3. HYDROMORPHONE [Concomitant]
     Active Substance: HYDROMORPHONE
     Dosage: UNK
     Dates: start: 20220510
  4. HYDROMORPHONE [Concomitant]
     Active Substance: HYDROMORPHONE
     Dosage: UNK
     Dates: start: 20220604
  5. METHYLNALTREXONE [Concomitant]
     Active Substance: METHYLNALTREXONE
     Dosage: UNK
     Dates: start: 20220531
  6. MOMETASONE [Concomitant]
     Active Substance: MOMETASONE
     Dosage: UNK
     Dates: start: 20220419
  7. ONDANSETRON [Concomitant]
     Active Substance: ONDANSETRON
     Dosage: UNK
     Dates: start: 20220118
  8. OXYCODONE [Concomitant]
     Active Substance: OXYCODONE
     Dosage: UNK
     Dates: start: 20220103
  9. OXYCODONE [Concomitant]
     Active Substance: OXYCODONE
     Dosage: UNK
     Dates: start: 20220510
  10. POLYETHYLENE GLYCOL 3350 [Concomitant]
     Active Substance: POLYETHYLENE GLYCOL 3350
     Dosage: UNK
     Dates: start: 20220103
  11. PROCHLORPERAZINE [Concomitant]
     Active Substance: PROCHLORPERAZINE
     Dosage: UNK
     Dates: start: 20220112
  12. PEGFILGRASTIM [Concomitant]
     Active Substance: PEGFILGRASTIM
     Dosage: UNK
     Dates: start: 20220511
  13. OLANZAPINE [Concomitant]
     Active Substance: OLANZAPINE
     Dosage: UNK
     Dates: start: 20220719
  14. LOPERAMIDE [Concomitant]
     Active Substance: LOPERAMIDE
     Dosage: UNK
     Dates: start: 20220805
  15. IBUPROFEN [Concomitant]
     Active Substance: IBUPROFEN
     Dosage: UNK
     Dates: start: 20220510
  16. DEXAMETHASONE [Concomitant]
     Active Substance: DEXAMETHASONE
     Dosage: UNK
     Dates: start: 20220423

REACTIONS (13)
  - Ileus [Recovering/Resolving]
  - Diarrhoea [Recovered/Resolved]
  - Gastroenteritis [Unknown]
  - Gastroenteritis [Unknown]
  - Hypoglycaemia [Unknown]
  - Dehydration [Unknown]
  - Abdominal pain lower [Unknown]
  - Hyperhidrosis [Unknown]
  - Malaise [Unknown]
  - Fatigue [Unknown]
  - Nausea [Unknown]
  - Abdominal pain [Unknown]
  - Product use issue [Unknown]

NARRATIVE: CASE EVENT DATE: 20220613
